FAERS Safety Report 5494145-5 (Version None)
Quarter: 2007Q4

REPORT INFORMATION
  Report Type: 
  Country: None (occurrence: None)
  Receive Date: 20071022
  Receipt Date: 20071012
  Transmission Date: 20080405
  Serious: Yes (Other)
  Sender: FDA-Public Use
  Company Number: 2007SP020859

PATIENT
  Sex: Male

DRUGS (1)
  1. TEMODAR [Suspect]
     Indication: BRAIN NEOPLASM
     Dosage: PO
     Route: 048

REACTIONS (2)
  - BONE MARROW FAILURE [None]
  - PETECHIAE [None]
